FAERS Safety Report 9771235 (Version 1)
Quarter: 2013Q4

REPORT INFORMATION
  Report Type: Spontaneous
  Country: FR (occurrence: FR)
  Receive Date: 20131218
  Receipt Date: 20131218
  Transmission Date: 20140711
  Serious: Yes (Other)
  Sender: FDA-Public Use
  Company Number: PHHY2013FR145472

PATIENT
  Age: 22 Year
  Sex: Female

DRUGS (1)
  1. TRAMADOL [Suspect]
     Dosage: 4.5 G, UNK

REACTIONS (4)
  - Cardiac failure congestive [Unknown]
  - Cardiac arrest [Unknown]
  - Shock [Unknown]
  - Loss of consciousness [Unknown]
